FAERS Safety Report 4505187-8 (Version None)
Quarter: 2004Q4

REPORT INFORMATION
  Report Type: 
  Country: None (occurrence: None)
  Receive Date: 20041118
  Receipt Date: 20041118
  Transmission Date: 20050328
  Serious: Yes (Life-Threatening)
  Sender: FDA-Public Use
  Company Number: None

PATIENT
  Sex: Female
  Weight: 77.6 kg

DRUGS (7)
  1. TEMOZOLAMIDE 472MG/M2 SHERRING-PLOUGH [Suspect]
     Indication: OLIGODENDROGLIOMA
     Dosage: 910MG ONCE Q 28 DAYS PO
     Route: 048
     Dates: start: 20040615
  2. O6-BENZYLGUANINE 120MG/M2 ACCESS ONCOLOGY [Suspect]
     Indication: OLIGODENDROGLIOMA
     Dosage: 230MG ONCE Q 28 DAYS IV
     Route: 042
     Dates: start: 20040615
  3. 06BENZYLGUANINE IV [Suspect]
     Dosage: 58MG IV
     Route: 042
     Dates: start: 20040615, end: 20040617
  4. KEPPRA [Concomitant]
  5. DILANTIN [Concomitant]
  6. LAMICTAL [Concomitant]
  7. NONI JUICE [Concomitant]

REACTIONS (4)
  - DISEASE PROGRESSION [None]
  - DISEASE RECURRENCE [None]
  - NEUTROPHIL COUNT DECREASED [None]
  - THROMBOCYTOPENIA [None]
